FAERS Safety Report 13919020 (Version 2)
Quarter: 2017Q4

REPORT INFORMATION
  Report Type: Spontaneous
  Country: IN (occurrence: IN)
  Receive Date: 20170830
  Receipt Date: 20171202
  Transmission Date: 20180320
  Serious: Yes (Death, Hospitalization)
  Sender: FDA-Public Use
  Company Number: IN-SUN PHARMACEUTICAL INDUSTRIES LTD-2017R1-148498

PATIENT
  Age: 43 Year
  Sex: Male

DRUGS (1)
  1. PHENYTOIN. [Suspect]
     Active Substance: PHENYTOIN
     Indication: EPILEPSY
     Dosage: 100 MG, TID
     Route: 065

REACTIONS (3)
  - Myocarditis [Fatal]
  - Stevens-Johnson syndrome [Fatal]
  - Cardiac arrest [Fatal]
